FAERS Safety Report 15697719 (Version 2)
Quarter: 2018Q4

REPORT INFORMATION
  Report Type: Report from Study
  Country: None (occurrence: LT)
  Receive Date: 20181207
  Receipt Date: 20181222
  Transmission Date: 20190205
  Serious: Yes (Hospitalization, Other)
  Sender: FDA-Public Use
  Company Number: LT-ABBVIE-18K-234-2582620-00

PATIENT
  Age: 29 Year
  Sex: Male

DRUGS (3)
  1. FRAXIPARINE [Concomitant]
     Active Substance: NADROPARIN CALCIUM
     Indication: PRODUCT USED FOR UNKNOWN INDICATION
  2. HUMIRA [Suspect]
     Active Substance: ADALIMUMAB
     Indication: COLITIS ULCERATIVE
     Route: 058
     Dates: start: 201807
  3. HUMIRA [Suspect]
     Active Substance: ADALIMUMAB
     Indication: COLITIS

REACTIONS (5)
  - Haematochezia [Recovering/Resolving]
  - Anaemia [Recovering/Resolving]
  - Haemoglobin decreased [Recovering/Resolving]
  - Haemorrhagic anaemia [Recovering/Resolving]
  - Frequent bowel movements [Recovering/Resolving]

NARRATIVE: CASE EVENT DATE: 2018
